FAERS Safety Report 18233520 (Version 2)
Quarter: 2020Q4

REPORT INFORMATION
  Report Type: Spontaneous
  Country: JP (occurrence: JP)
  Receive Date: 20200904
  Receipt Date: 20201008
  Transmission Date: 20210113
  Serious: Yes (Hospitalization, Other)
  Sender: FDA-Public Use
  Company Number: JP-ROCHE-2671889

PATIENT
  Age: 92 Year
  Sex: Female

DRUGS (2)
  1. CRAVIT [Concomitant]
     Active Substance: LEVOFLOXACIN
     Indication: INFECTION PROPHYLAXIS
     Route: 047
     Dates: start: 20200817, end: 20200823
  2. LUCENTIS [Suspect]
     Active Substance: RANIBIZUMAB
     Indication: RETINAL VEIN OCCLUSION
     Dosage: 0.05 ML
     Route: 031
     Dates: start: 20200820, end: 20200820

REACTIONS (7)
  - Feeling cold [Unknown]
  - Blood pressure decreased [Unknown]
  - Embolic stroke [Unknown]
  - Blood pressure increased [Unknown]
  - Vomiting [Unknown]
  - Cerebral infarction [Recovered/Resolved with Sequelae]
  - Atrial fibrillation [Unknown]

NARRATIVE: CASE EVENT DATE: 20200823
